FAERS Safety Report 4417483-3 (Version None)
Quarter: 2004Q2

REPORT INFORMATION
  Report Type: 
  Country: None (occurrence: None)
  Receive Date: 20040625
  Receipt Date: 20040405
  Transmission Date: 20050107
  Serious: No
  Sender: FDA-Public Use
  Company Number: 205889

PATIENT
  Age: 47 Year
  Sex: Female
  Weight: 59.9 kg

DRUGS (17)
  1. AVASTIN [Suspect]
     Indication: COLON CANCER
     Dosage: 323 MG, Q2W, INTRAVENOUS
     Route: 042
     Dates: start: 20040303, end: 20040317
  2. OXALIPLATIN (OXALIPLATIN) [Concomitant]
  3. FLUOROURACIL [Concomitant]
  4. LEUCOVORIN CALCIUM [Concomitant]
  5. ATIVAN [Concomitant]
  6. COUMADIN [Concomitant]
  7. MAGNESIUM SULFATE [Concomitant]
  8. CALCIUM GLUCONATE [Concomitant]
  9. ZOFRAN [Concomitant]
  10. EMEND [Concomitant]
  11. ULTRACET (ACETAMINOPHEN, TRAMADOL HYDROCHLORIDE) [Concomitant]
  12. ARANESP [Concomitant]
  13. DECADRON [Concomitant]
  14. BENADRYL [Concomitant]
  15. ATROPINE [Concomitant]
  16. ALOXI (PALONOSETRON) [Concomitant]
  17. CPT-11 (IRINOTECAN HYDROCHLORIDE) [Concomitant]

REACTIONS (2)
  - CONTUSION [None]
  - EPISTAXIS [None]
